FAERS Safety Report 5160265-8 (Version None)
Quarter: 2006Q4

REPORT INFORMATION
  Report Type: 
  Country: None (occurrence: None)
  Receive Date: 20061129
  Receipt Date: 20000329
  Transmission Date: 20070319
  Serious: Yes (Life-Threatening, Hospitalization)
  Sender: FDA-Public Use
  Company Number: FR-GLAXOSMITHKLINE-B0079752A

PATIENT
  Age: 2 Day
  Sex: Male
  Weight: 0.9 kg

DRUGS (6)
  1. RETROVIR [Suspect]
     Indication: ANTIVIRAL PROPHYLAXIS
     Dosage: 3MG PER DAY
     Route: 042
     Dates: start: 20000323, end: 20000327
  2. VIRAMUNE [Suspect]
     Indication: ANTIVIRAL PROPHYLAXIS
     Route: 048
     Dates: start: 20000324
  3. COMBIVIR [Suspect]
     Indication: HUMAN IMMUNODEFICIENCY VIRUS TRANSMISSION
  4. NICARDIPINE HYDROCHLORIDE [Concomitant]
  5. METHYLDOPA [Concomitant]
  6. ATENOLOL [Concomitant]

REACTIONS (8)
  - ABDOMINAL DISTENSION [None]
  - ANAEMIA [None]
  - DRUG EXPOSURE DURING PREGNANCY [None]
  - HYPERTONIA [None]
  - MECONIUM ILEUS [None]
  - NEUTROPENIA [None]
  - PREMATURE BABY [None]
  - THROMBOCYTOPENIA [None]
